FAERS Safety Report 19879638 (Version 1)
Quarter: 2021Q3

REPORT INFORMATION
  Report Type: Spontaneous
  Country: JP (occurrence: JP)
  Receive Date: 20210924
  Receipt Date: 20210924
  Transmission Date: 20211014
  Serious: Yes (Hospitalization, Other)
  Sender: FDA-Public Use
  Company Number: JP-PFIZER INC-202101199401

PATIENT
  Age: 5 Decade
  Sex: Female

DRUGS (8)
  1. VENLAFAXINE HCL [Suspect]
     Active Substance: VENLAFAXINE HYDROCHLORIDE
     Indication: DEPRESSION
  2. BROMAZEPAM [Suspect]
     Active Substance: BROMAZEPAM
     Indication: DEPRESSION
  3. VENLAFAXINE HCL [Suspect]
     Active Substance: VENLAFAXINE HYDROCHLORIDE
     Indication: FIBROMYALGIA
     Dosage: 60 TABLETS (2.25 G)
  4. TRAMCET [Suspect]
     Active Substance: ACETAMINOPHEN\TRAMADOL
     Indication: DEPRESSION
  5. NITRAZEPAM [Suspect]
     Active Substance: NITRAZEPAM
     Indication: DEPRESSION
  6. BROMAZEPAM [Suspect]
     Active Substance: BROMAZEPAM
     Indication: FIBROMYALGIA
     Dosage: 24 TABLETS (0.12 G)
  7. NITRAZEPAM [Suspect]
     Active Substance: NITRAZEPAM
     Indication: FIBROMYALGIA
     Dosage: 22 TABLETS (0.11 G)
  8. TRAMCET [Suspect]
     Active Substance: ACETAMINOPHEN\TRAMADOL
     Indication: FIBROMYALGIA
     Dosage: 66 TABLETS (CONTENT: 2.47 G/21.45 G)
     Route: 048

REACTIONS (7)
  - Overdose [Unknown]
  - Altered state of consciousness [Recovering/Resolving]
  - Hypoxia [Recovering/Resolving]
  - Glossoptosis [Recovering/Resolving]
  - Aspiration [Recovering/Resolving]
  - Coma [Recovering/Resolving]
  - Toxicity to various agents [Unknown]
